FAERS Safety Report 13664425 (Version 1)
Quarter: 2017Q2

REPORT INFORMATION
  Report Type: Spontaneous
  Country: US (occurrence: US)
  Receive Date: 20170616
  Receipt Date: 20170616
  Transmission Date: 20170830
  Serious: No
  Sender: FDA-Public Use
  Company Number: None

PATIENT
  Age: 64 Year
  Sex: Female

DRUGS (1)
  1. TEMOZOLOMIDE CAP 100MG [Suspect]
     Active Substance: TEMOZOLOMIDE
     Dosage: 400MG QD FOR 5 DAYS ORAL?PT HAS BEEN ON FOR ALMOST A YEAR
     Route: 048

REACTIONS (2)
  - Headache [None]
  - Seizure [None]

NARRATIVE: CASE EVENT DATE: 20170615
